FAERS Safety Report 24404791 (Version 1)
Quarter: 2024Q4

REPORT INFORMATION
  Report Type: Spontaneous
  Country: US (occurrence: None)
  Receive Date: 20241004
  Receipt Date: 20241004
  Transmission Date: 20250115
  Serious: Yes (unspecified)
  Sender: Public
  Company Number: None

PATIENT
  Age: 51 Year
  Sex: Male

DRUGS (2)
  1. METRONIDAZOLE HYDROCHLORIDE [Suspect]
     Active Substance: METRONIDAZOLE HYDROCHLORIDE
     Indication: Antibiotic prophylaxis
     Dates: start: 20240314, end: 20240315
  2. CEFTRIAXONE [Suspect]
     Active Substance: CEFTRIAXONE
     Dates: start: 20240314, end: 20240315

REACTIONS (3)
  - Hypersensitivity [None]
  - Eye pruritus [None]
  - Eye irritation [None]

NARRATIVE: CASE EVENT DATE: 20240314
